FAERS Safety Report 9728266 (Version 1)
Quarter: 2013Q4

REPORT INFORMATION
  Report Type: Spontaneous
  Country: US (occurrence: None)
  Receive Date: 20131203
  Receipt Date: 20131203
  Transmission Date: 20140711
  Serious: Yes (Death, Life-Threatening, Hospitalization)
  Sender: FDA-Public Use
  Company Number: None

PATIENT
  Age: 62 Year
  Sex: Female

DRUGS (15)
  1. TECFIDERA [Suspect]
     Indication: MULTIPLE SCLEROSIS RELAPSE
     Route: 048
     Dates: start: 20130701, end: 20131128
  2. ACYCLOVIR [Concomitant]
  3. GABAPENTIN [Concomitant]
  4. HYDROCODONE [Concomitant]
  5. LEVOTHYROXINE [Concomitant]
  6. TEMAZEPAM [Concomitant]
  7. TRAMADOL [Concomitant]
  8. TRIMETHOPRIM [Concomitant]
  9. VENLAFAXINE [Concomitant]
  10. CALCIUM-VITAMIN D [Concomitant]
  11. FENOFIBRATE [Concomitant]
  12. METFORMIN [Concomitant]
  13. ONGLYZA [Concomitant]
  14. PROTONX [Concomitant]
  15. VESICARE [Concomitant]

REACTIONS (5)
  - Confusional state [None]
  - Sepsis [None]
  - Hypotension [None]
  - Pneumonia [None]
  - Cardio-respiratory arrest [None]
